FAERS Safety Report 23444450 (Version 1)
Quarter: 2024Q1

REPORT INFORMATION
  Report Type: Spontaneous
  Country: NL (occurrence: NL)
  Receive Date: 20240125
  Receipt Date: 20240125
  Transmission Date: 20240409
  Serious: Yes (Hospitalization, Other)
  Sender: FDA-Public Use
  Company Number: None

PATIENT
  Age: 31 Year
  Sex: Female
  Weight: 70 kg

DRUGS (9)
  1. ELOCON [Suspect]
     Active Substance: MOMETASONE FUROATE
     Indication: Eczema
     Dosage: 4X PER WEEK 1X DAILY; STRENGTH 1 MG/G
     Dates: start: 2012, end: 20160216
  2. CLOBETASOL [Suspect]
     Active Substance: CLOBETASOL
     Indication: Eczema
     Dosage: STRENGTH 0.5 MG/G
     Dates: start: 2012, end: 2016
  3. LOCOID [Concomitant]
     Active Substance: HYDROCORTISONE BUTYRATE
     Dosage: STRENGTH 1 MG/G
  4. CLOBETASOL PROPIONATE [Concomitant]
     Active Substance: CLOBETASOL PROPIONATE
     Dosage: STRENGTH 0.5 MG/G
  5. DESOXIMETASONE [Concomitant]
     Active Substance: DESOXIMETASONE
     Dosage: STRENGTH 2.5 MG/G
  6. CUTIVATE [Concomitant]
     Active Substance: FLUTICASONE PROPIONATE
     Dosage: STRENGTH 0.5 MG/G
  7. TRIAMCINOLONE HEXACETONIDE [Concomitant]
     Active Substance: TRIAMCINOLONE HEXACETONIDE
     Dosage: UNK
  8. BETAMETHASONE DIPROPIONATE\CALCIPOTRIENE MONOHYDRATE [Concomitant]
     Active Substance: BETAMETHASONE DIPROPIONATE\CALCIPOTRIENE MONOHYDRATE
     Dosage: STRENGTH 0.5 MG/50 UG/G
  9. CYCLOSPORINE [Concomitant]
     Active Substance: CYCLOSPORINE
     Dosage: UNK

REACTIONS (15)
  - Skin swelling [Recovered/Resolved]
  - Mood swings [Recovered/Resolved]
  - Fatigue [Recovered/Resolved]
  - Erythema [Recovered/Resolved]
  - Pruritus [Recovered/Resolved]
  - Skin weeping [Recovered/Resolved]
  - Steroid dependence [Recovered/Resolved]
  - Eye irritation [Recovered/Resolved]
  - Eczema [Recovered/Resolved]
  - Pain of skin [Recovered/Resolved]
  - Skin exfoliation [Recovered/Resolved]
  - Impaired healing [Recovered/Resolved]
  - Alopecia [Recovered/Resolved]
  - Topical steroid withdrawal reaction [Recovered/Resolved]
  - Wound [Recovered/Resolved]
